FAERS Safety Report 4648706-3 (Version None)
Quarter: 2005Q2

REPORT INFORMATION
  Report Type: 
  Country: None (occurrence: None)
  Receive Date: 20050427
  Receipt Date: 20050413
  Transmission Date: 20051028
  Serious: Yes (Other)
  Sender: FDA-Public Use
  Company Number: USA040669395

PATIENT
  Age: 81 Year
  Sex: Female
  Weight: 66 kg

DRUGS (10)
  1. FORTEO [Suspect]
     Indication: OSTEOPOROSIS
     Dosage: 20 UG/1 DAY
     Dates: start: 20040504
  2. ACTONEL [Concomitant]
  3. AMBIEN [Concomitant]
  4. ATROVENT [Concomitant]
  5. HYDROCHLOROTHIAZIDE W/IRBESARTAN [Concomitant]
  6. CELEBREX [Concomitant]
  7. LAMISIL [Concomitant]
  8. LISINOPRIL [Concomitant]
  9. METOPROLOL [Concomitant]
  10. HYDROCHLOROTHIAZIDE [Concomitant]

REACTIONS (10)
  - CEREBRAL ATROPHY [None]
  - MICROANGIOPATHY [None]
  - MUSCLE SPASMS [None]
  - OPTIC DISC HAEMORRHAGE [None]
  - PAPILLOEDEMA [None]
  - RETINAL HAEMORRHAGE [None]
  - RETINAL VEIN OCCLUSION [None]
  - SCOTOMA [None]
  - VITREOUS DETACHMENT [None]
  - VITREOUS HAEMORRHAGE [None]
